FAERS Safety Report 18715935 (Version 2)
Quarter: 2021Q1

REPORT INFORMATION
  Report Type: Spontaneous
  Country: MN (occurrence: MN)
  Receive Date: 20210108
  Receipt Date: 20210116
  Transmission Date: 20210419
  Serious: Yes (Death, Hospitalization)
  Sender: FDA-Public Use
  Company Number: NVSC2020MN343919

PATIENT
  Age: 70 Year
  Sex: Male

DRUGS (2)
  1. TAFINLAR [Suspect]
     Active Substance: DABRAFENIB MESYLATE
     Indication: NON-SMALL CELL LUNG CANCER
     Dosage: 150 MG, BID
     Route: 065
  2. MEKINIST [Suspect]
     Active Substance: TRAMETINIB DIMETHYL SULFOXIDE
     Indication: NON-SMALL CELL LUNG CANCER
     Dosage: UNK, QD
     Route: 065

REACTIONS (7)
  - Chronic obstructive pulmonary disease [Unknown]
  - Dyspnoea [Unknown]
  - Death [Fatal]
  - Pneumonia [Unknown]
  - Embolism [Unknown]
  - Pulmonary hypertension [Unknown]
  - Gait disturbance [Unknown]
